FAERS Safety Report 21005685 (Version 1)
Quarter: 2022Q2

REPORT INFORMATION
  Report Type: Spontaneous
  Country: US (occurrence: None)
  Receive Date: 20220624
  Receipt Date: 20220624
  Transmission Date: 20220720
  Serious: Yes (Other)
  Sender: FDA-Public Use
  Company Number: None

PATIENT
  Age: 65 Year
  Sex: Male
  Weight: 55.35 kg

DRUGS (1)
  1. PAXLOVID [Suspect]
     Active Substance: NIRMATRELVIR\RITONAVIR
     Indication: COVID-19
     Dosage: FREQUENCY : TWICE A DAY;?
     Route: 048
     Dates: start: 20220528, end: 20220601

REACTIONS (5)
  - COVID-19 [None]
  - SARS-CoV-2 test positive [None]
  - Oropharyngeal pain [None]
  - Nasal congestion [None]
  - Cough [None]

NARRATIVE: CASE EVENT DATE: 20220609
